FAERS Safety Report 7316821-1 (Version None)
Quarter: 2011Q1

REPORT INFORMATION
  Report Type: 
  Country: None (occurrence: None)
  Receive Date: 20110226
  Receipt Date: 20100818
  Transmission Date: 20110831
  Serious: No
  Sender: FDA-Public Use
  Company Number: US-ALLERGAN-1010708US

PATIENT
  Age: 30 Year
  Sex: Male

DRUGS (2)
  1. BOTOXA? [Suspect]
     Indication: CEREBRAL PALSY
     Dosage: 400 UNITS, SINGLE
     Route: 030
     Dates: start: 20100414, end: 20100414
  2. BOTOXA? [Suspect]
     Indication: MUSCLE SPASTICITY

REACTIONS (3)
  - GAIT DISTURBANCE [None]
  - SPEECH DISORDER [None]
  - DYSPHAGIA [None]
